FAERS Safety Report 10019735 (Version 1)
Quarter: 2014Q1

REPORT INFORMATION
  Report Type: Spontaneous
  Country: US (occurrence: US)
  Receive Date: 20140318
  Receipt Date: 20140318
  Transmission Date: 20141002
  Serious: No
  Sender: FDA-Public Use
  Company Number: US-GALDERMA-US14000143

PATIENT
  Age: 66 Year
  Sex: Female

DRUGS (14)
  1. MIRVASO (BRIMONIDINE) TOPICAL GEL, 0.33% [Suspect]
     Indication: ROSACEA
     Dosage: 0.33%
     Route: 061
     Dates: start: 20140104, end: 20140104
  2. CETAPHIL MOISTURIZING CREAM [Concomitant]
     Indication: DRY SKIN PROPHYLAXIS
     Route: 061
     Dates: start: 1974
  3. ZANTAC (RANITIDINE) [Concomitant]
     Indication: GASTROOESOPHAGEAL REFLUX DISEASE
     Dosage: 300 MG
     Route: 048
     Dates: start: 20131011
  4. CRESTOR (ROSUVASTATIN) [Concomitant]
     Indication: BLOOD CHOLESTEROL
     Dosage: 10 MG
     Route: 048
     Dates: start: 1994
  5. FINACEA (AZELAIC ACID) [Concomitant]
     Indication: ROSACEA
     Route: 061
  6. CHROMIUM PICOLINATE [Concomitant]
     Dosage: 200 MCG
     Dates: start: 2001
  7. COQ 10 [Concomitant]
     Dosage: 400 MG
  8. B 12 [Concomitant]
     Dosage: 1000 MCG
     Dates: start: 2004
  9. COLON HEALTH PROBIOTIC [Concomitant]
     Dates: start: 20131011
  10. MULTIVITAMIN [Concomitant]
  11. CALCIUM [Concomitant]
     Dosage: 1000 MG
     Dates: start: 1994
  12. MAGNESIUM [Concomitant]
     Dosage: 400 MG
     Dates: start: 1994
  13. ZINC [Concomitant]
     Dosage: 15 MG
  14. VITAMIN D3 [Concomitant]
     Dosage: 1000 IU
     Dates: start: 1994

REACTIONS (6)
  - Dry skin [Recovered/Resolved]
  - Pain of skin [Recovered/Resolved]
  - Erythema [Recovered/Resolved]
  - Skin burning sensation [Recovered/Resolved]
  - Skin warm [Recovered/Resolved]
  - Off label use [Recovered/Resolved]
